FAERS Safety Report 6536147-3 (Version None)
Quarter: 2010Q1

REPORT INFORMATION
  Report Type: 
  Country: None (occurrence: None)
  Receive Date: 20100113
  Receipt Date: 20091021
  Transmission Date: 20100710
  Serious: No
  Sender: FDA-Public Use
  Company Number: US-ALLERGAN-0914686US

PATIENT
  Sex: Female

DRUGS (1)
  1. LATISSE [Suspect]
     Indication: GROWTH OF EYELASHES
     Dosage: UNK

REACTIONS (1)
  - THERAPEUTIC RESPONSE DECREASED [None]
